FAERS Safety Report 23673265 (Version 5)
Quarter: 2024Q2

REPORT INFORMATION
  Report Type: Report from Study
  Country: CA (occurrence: CA)
  Receive Date: 20240326
  Receipt Date: 20240527
  Transmission Date: 20240716
  Serious: Yes (Hospitalization, Other)
  Sender: FDA-Public Use
  Company Number: CA-TAKEDA-2024TUS028282

PATIENT
  Age: 85 Year
  Sex: Male
  Weight: 73.7 kg

DRUGS (5)
  1. VEDOLIZUMAB [Suspect]
     Active Substance: VEDOLIZUMAB
     Indication: Colitis ulcerative
     Dosage: 300 MILLIGRAM
     Route: 042
     Dates: start: 20240111
  2. VEDOLIZUMAB [Suspect]
     Active Substance: VEDOLIZUMAB
     Dosage: 300 MILLIGRAM, Q4WEEKS
     Route: 042
     Dates: start: 20240410
  3. IRON [Suspect]
     Active Substance: IRON
     Indication: Product used for unknown indication
     Dosage: UNK
     Route: 048
  4. PREDNISONE [Concomitant]
     Active Substance: PREDNISONE
     Dosage: UNK
  5. RAMIPRIL [Concomitant]
     Active Substance: RAMIPRIL
     Dosage: 10 MILLIGRAM

REACTIONS (3)
  - Colitis ulcerative [Unknown]
  - Faeces discoloured [Recovered/Resolved]
  - Off label use [Unknown]

NARRATIVE: CASE EVENT DATE: 20240410
